FAERS Safety Report 20700166 (Version 1)
Quarter: 2022Q2

REPORT INFORMATION
  Report Type: Spontaneous
  Country: US (occurrence: None)
  Receive Date: 20220411
  Receipt Date: 20220411
  Transmission Date: 20220720
  Serious: Yes (Hospitalization)
  Sender: FDA-Public Use
  Company Number: None

PATIENT
  Age: 53 Year
  Sex: Male

DRUGS (13)
  1. AMBRISENTAN [Suspect]
     Active Substance: AMBRISENTAN
     Indication: Pulmonary arterial hypertension
     Dosage: FREQUENCY : DAILY;?
     Route: 048
     Dates: start: 20211028
  2. FERROUS SULFATE [Concomitant]
     Active Substance: FERROUS SULFATE
  3. GABAPENTIN [Concomitant]
     Active Substance: GABAPENTIN
  4. IPRATROPIUM SOL ALBUTER [Concomitant]
  5. LANTUS SOLOS [Concomitant]
  6. METFORMIN [Concomitant]
     Active Substance: METFORMIN HYDROCHLORIDE
  7. METOPROL SUC [Concomitant]
  8. SILDENAFIL [Concomitant]
     Active Substance: SILDENAFIL
  9. SODIUM BICAR [Concomitant]
  10. TYLENOL [Concomitant]
     Active Substance: ACETAMINOPHEN
  11. TYVASO SOL [Concomitant]
  12. UPTRAVI [Concomitant]
     Active Substance: SELEXIPAG
  13. ZYRTEC ALLGY [Concomitant]

REACTIONS (1)
  - Malaise [None]

NARRATIVE: CASE EVENT DATE: 20220402
